FAERS Safety Report 17961005 (Version 1)
Quarter: 2020Q2

REPORT INFORMATION
  Report Type: Spontaneous
  Country: US (occurrence: US)
  Receive Date: 20200630
  Receipt Date: 20200630
  Transmission Date: 20200714
  Serious: Yes (Other)
  Sender: FDA-Public Use
  Company Number: US-ALVOGEN-2020-ALVOGEN-108748

PATIENT
  Age: 36 Year
  Sex: Male

DRUGS (2)
  1. GABAPENTIN. [Suspect]
     Active Substance: GABAPENTIN
     Indication: ALCOHOLIC SEIZURE
     Dosage: 400 MG EVERY 8 HOURS AFTER 3 DAYS
  2. GABAPENTIN. [Suspect]
     Active Substance: GABAPENTIN
     Indication: ALCOHOLIC SEIZURE
     Dosage: 600 MG EVERY 6 HOURS, FOR 3 DAYS.

REACTIONS (1)
  - Hepatotoxicity [Unknown]
